FAERS Safety Report 15543257 (Version 1)
Quarter: 2018Q4

REPORT INFORMATION
  Report Type: Spontaneous
  Country: DE (occurrence: DE)
  Receive Date: 20181023
  Receipt Date: 20181023
  Transmission Date: 20190205
  Serious: Yes (Life-Threatening, Other)
  Sender: FDA-Public Use
  Company Number: DE-MYLANLABS-2018M1079757

PATIENT
  Age: 82 Year
  Sex: Male
  Weight: 86 kg

DRUGS (9)
  1. MOLSIDOMINE [Suspect]
     Active Substance: MOLSIDOMINE
     Indication: CARDIAC FAILURE
     Dosage: UNK
  2. FUROSEMIDE. [Concomitant]
     Active Substance: FUROSEMIDE
     Indication: CARDIAC FAILURE
     Dosage: UNK
  3. TORASEMIDE [Concomitant]
     Active Substance: TORSEMIDE
     Indication: CARDIAC FAILURE
     Dosage: UNK
  4. METOPROLOL. [Suspect]
     Active Substance: METOPROLOL
     Indication: HYPERTENSION
     Dosage: UNK
  5. PHENPROCOUMON [Concomitant]
     Active Substance: PHENPROCOUMON
     Indication: ATRIAL FIBRILLATION
     Dosage: UNK
  6. RANEXA [Suspect]
     Active Substance: RANOLAZINE
     Indication: CARDIAC FAILURE
     Dosage: UNK
     Route: 048
  7. CANDESARTAN. [Suspect]
     Active Substance: CANDESARTAN
     Indication: HYPERTENSION
     Dosage: UNK
  8. RANEXA [Suspect]
     Active Substance: RANOLAZINE
     Indication: DYSPNOEA
     Dosage: UNK
  9. ALLOPURINOL. [Suspect]
     Active Substance: ALLOPURINOL
     Indication: HYPERURICAEMIA
     Dosage: UNK

REACTIONS (2)
  - Off label use [Recovered/Resolved]
  - Renal function test abnormal [Recovered/Resolved]

NARRATIVE: CASE EVENT DATE: 201708
